FAERS Safety Report 14683261 (Version 1)
Quarter: 2018Q1

REPORT INFORMATION
  Report Type: Spontaneous
  Country: FR (occurrence: FR)
  Receive Date: 20180327
  Receipt Date: 20180327
  Transmission Date: 20180509
  Serious: Yes (Life-Threatening)
  Sender: FDA-Public Use
  Company Number: FR-B.I. PHARMACEUTICALS,INC./RIDGEFIELD-2018-12-001119

PATIENT
  Age: 87 Year
  Sex: Male

DRUGS (6)
  1. MICARDIS [Suspect]
     Active Substance: TELMISARTAN
     Indication: DRUG ADMINISTRATION ERROR
     Dosage: ; IN TOTAL
     Route: 048
     Dates: start: 20180224, end: 20180224
  2. JANUMET [Suspect]
     Active Substance: METFORMIN HYDROCHLORIDE\SITAGLIPTIN PHOSPHATE
     Indication: DRUG ADMINISTRATION ERROR
     Dosage: ; IN TOTAL; STRENGTH:  50 MG/1000 MG
     Route: 048
     Dates: start: 20180224, end: 20180224
  3. GLIMEPIRIDE. [Suspect]
     Active Substance: GLIMEPIRIDE
     Indication: DRUG ADMINISTRATION ERROR
     Dosage: : IN TOTAL
     Route: 048
     Dates: start: 20180224, end: 20180224
  4. FLECA?NE [Suspect]
     Active Substance: FLECAINIDE ACETATE
     Indication: DRUG ADMINISTRATION ERROR
     Dosage: ; IN TOTAL
     Route: 048
     Dates: start: 20180224, end: 20180224
  5. RILMENIDINE [Suspect]
     Active Substance: RILMENIDINE
     Indication: DRUG ADMINISTRATION ERROR
     Dosage: ; IN TOTAL
     Route: 048
     Dates: start: 20180224, end: 20180224
  6. CELIPROLOL [Suspect]
     Active Substance: CELIPROLOL
     Indication: DRUG ADMINISTRATION ERROR
     Dosage: ; IN TOTAL
     Route: 048
     Dates: start: 20180224, end: 20180224

REACTIONS (3)
  - Hypoglycaemic coma [Recovered/Resolved]
  - Bradycardia [Recovered/Resolved]
  - Atrioventricular block complete [Recovered/Resolved]

NARRATIVE: CASE EVENT DATE: 20180225
